FAERS Safety Report 16727926 (Version 1)
Quarter: 2019Q3

REPORT INFORMATION
  Report Type: Spontaneous
  Country: US (occurrence: US)
  Receive Date: 20190822
  Receipt Date: 20190822
  Transmission Date: 20191005
  Serious: No
  Sender: FDA-Public Use
  Company Number: US-JNJFOC-20190823872

PATIENT
  Age: 84 Year
  Sex: Female
  Weight: 51.76 kg

DRUGS (1)
  1. WOMENS ROGAINE UNSCENTED [Suspect]
     Active Substance: MINOXIDIL
     Indication: ALOPECIA
     Dosage: HALF A CAP FULL. ONCE A DAY
     Route: 061

REACTIONS (3)
  - Incorrect dose administered [Unknown]
  - Hair texture abnormal [Unknown]
  - Product packaging issue [Unknown]
